FAERS Safety Report 10030152 (Version 2)
Quarter: 2014Q1

REPORT INFORMATION
  Report Type: Spontaneous
  Country: US (occurrence: US)
  Receive Date: 20140323
  Receipt Date: 20140323
  Transmission Date: 20141002
  Serious: No
  Sender: FDA-Public Use
  Company Number: US-ALLERGAN-1310202US

PATIENT
  Age: 63 Year
  Sex: Female

DRUGS (3)
  1. LATISSE 0.03% [Suspect]
     Indication: GROWTH OF EYELASHES
     Dosage: 1 GTT, UNK
     Route: 061
     Dates: start: 201305, end: 201305
  2. LATISSE 0.03% [Suspect]
     Dosage: 1 GTT, UNK
     Route: 061
     Dates: end: 201301
  3. REFRESH PRESERVATIVE-FREE EYE DROP NOS [Concomitant]
     Indication: DRY EYE
     Dosage: 2 GTT, PRN
     Route: 047

REACTIONS (6)
  - Hordeolum [Recovered/Resolved]
  - Hordeolum [Recovered/Resolved]
  - Wrong technique in drug usage process [Unknown]
  - Expired drug administered [Unknown]
  - Incorrect dose administered [Unknown]
  - Inappropriate schedule of drug administration [Unknown]
